FAERS Safety Report 7655881-5 (Version None)
Quarter: 2011Q3

REPORT INFORMATION
  Report Type: 
  Country: None (occurrence: None)
  Receive Date: 20110729
  Receipt Date: 20110720
  Transmission Date: 20111222
  Serious: Yes (Hospitalization)
  Sender: FDA-Public Use
  Company Number: WAES 1107USA02923

PATIENT
  Age: 11 Year
  Sex: Male
  Weight: 63.9572 kg

DRUGS (2)
  1. DECADRON [Suspect]
     Dosage: PO
  2. MK-22006 [Concomitant]

REACTIONS (3)
  - NO THERAPEUTIC RESPONSE [None]
  - NEPHROLITHIASIS [None]
  - FREQUENT BOWEL MOVEMENTS [None]
